APPROVED DRUG PRODUCT: CHLORAPREP WITH TINT
Active Ingredient: CHLORHEXIDINE GLUCONATE; ISOPROPYL ALCOHOL
Strength: 2%;70% (26ML)
Dosage Form/Route: SPONGE;TOPICAL
Application: N020832 | Product #002
Applicant: BECTON DICKINSON AND CO
Approved: May 3, 2005 | RLD: Yes | RS: Yes | Type: OTC

PATENTS:
Patent 7422388 | Expires: Apr 25, 2027